FAERS Safety Report 5961476-1 (Version None)
Quarter: 2008Q4

REPORT INFORMATION
  Report Type: 
  Country: None (occurrence: None)
  Receive Date: 20081121
  Receipt Date: 20081110
  Transmission Date: 20090506
  Serious: Yes (Hospitalization, Other)
  Sender: FDA-Public Use
  Company Number: US-ELI_LILLY_AND_COMPANY-US200610003102

PATIENT
  Sex: Female

DRUGS (9)
  1. FORTEO [Suspect]
     Indication: OSTEOPOROSIS
     Dosage: 20 UG, UNK
     Dates: start: 20051201, end: 20061001
  2. CALCIUM [Concomitant]
     Dosage: 1500 MG, DAILY (1/D)
  3. VITAMIN D [Concomitant]
     Dosage: 2000 IU, DAILY (1/D)
  4. PLAVIX [Concomitant]
     Indication: ANTICOAGULANT THERAPY
  5. COZAAR [Concomitant]
     Dosage: UNK, DAILY (1/D)
  6. PROCRIT [Concomitant]
  7. NEUROTON [Concomitant]
  8. GLUCOSAMINE W/CHONDROITIN [Concomitant]
     Dosage: 12 MG, UNK
  9. MIACALCIN [Concomitant]

REACTIONS (13)
  - BACK DISORDER [None]
  - BLOOD CALCIUM INCREASED [None]
  - CALCIPHYLAXIS [None]
  - ERYTHEMA [None]
  - HYPERLIPIDAEMIA [None]
  - NEOPLASM [None]
  - PAIN [None]
  - PERIPHERAL VASCULAR DISORDER [None]
  - PRURITUS [None]
  - SPINAL DEFORMITY [None]
  - TERMINAL INSOMNIA [None]
  - WOUND COMPLICATION [None]
  - WOUND HAEMORRHAGE [None]
